FAERS Safety Report 4621386-9 (Version None)
Quarter: 2005Q1

REPORT INFORMATION
  Report Type: 
  Country: None (occurrence: None)
  Receive Date: 20050325
  Receipt Date: 20050316
  Transmission Date: 20050727
  Serious: Yes (Disabling, Other)
  Sender: FDA-Public Use
  Company Number: 2005045180

PATIENT
  Age: 75 Year
  Sex: Male

DRUGS (2)
  1. EPLERENONE (EPLERENONE) [Suspect]
     Indication: CARDIAC FAILURE
     Dosage: 25 MG, ORAL
     Route: 048
  2. SPIRONOLACTONE [Concomitant]

REACTIONS (1)
  - URINARY RETENTION [None]
